FAERS Safety Report 14540129 (Version 1)
Quarter: 2018Q1

REPORT INFORMATION
  Report Type: Spontaneous
  Country: NL (occurrence: NL)
  Receive Date: 20180216
  Receipt Date: 20180216
  Transmission Date: 20180509
  Serious: Yes (Other)
  Sender: FDA-Public Use
  Company Number: NL-PFIZER INC-2018062318

PATIENT

DRUGS (3)
  1. OXALIPLATIN. [Suspect]
     Active Substance: OXALIPLATIN
     Indication: COLORECTAL CANCER
     Dosage: UNK, CYCLIC (5 CYCLES)
     Route: 042
  2. CAPECITABINE. [Concomitant]
     Active Substance: CAPECITABINE
     Dosage: UNK
     Route: 042
  3. CAPECITABINE. [Concomitant]
     Active Substance: CAPECITABINE
     Indication: COLORECTAL CANCER
     Dosage: UNK, CYCLIC (5 CYCLES)
     Route: 042

REACTIONS (2)
  - Neurotoxicity [Unknown]
  - Thrombocytopenia [Unknown]
